FAERS Safety Report 8386504-8 (Version None)
Quarter: 2012Q2

REPORT INFORMATION
  Report Type: 
  Country: None (occurrence: None)
  Receive Date: 20120525
  Receipt Date: 20120518
  Transmission Date: 20120825
  Serious: Yes (Other)
  Sender: FDA-Public Use
  Company Number: US-JNJFOC-20110807427

PATIENT
  Sex: Male

DRUGS (9)
  1. CIPROFLOXACIN HCL [Suspect]
     Indication: PRODUCT USED FOR UNKNOWN INDICATION
     Route: 065
  2. TOPROL-XL [Concomitant]
     Indication: BLOOD PRESSURE
     Route: 065
  3. HYDROCODONE BITARTRATE [Concomitant]
     Indication: PAIN
     Route: 065
  4. ACIPHEX [Concomitant]
     Indication: GASTRIC DISORDER
     Route: 065
  5. AVODART [Concomitant]
     Indication: PROSTATOMEGALY
     Route: 065
  6. FLOMAX [Concomitant]
     Indication: PROSTATOMEGALY
     Route: 065
     Dates: end: 20100101
  7. AMBIEN [Concomitant]
     Indication: SLEEP DISORDER
     Route: 065
  8. LEVAQUIN [Suspect]
     Indication: PROSTATE INFECTION
     Route: 048
     Dates: start: 20070601
  9. PRAVACHOL [Concomitant]
     Indication: BLOOD CHOLESTEROL
     Route: 065

REACTIONS (2)
  - ROTATOR CUFF SYNDROME [None]
  - TENDON DISORDER [None]
